FAERS Safety Report 4615534-4 (Version None)
Quarter: 2005Q1

REPORT INFORMATION
  Report Type: 
  Country: None (occurrence: None)
  Receive Date: 20050317
  Receipt Date: 20050310
  Transmission Date: 20050727
  Serious: Yes (Other)
  Sender: FDA-Public Use
  Company Number: 2005043204

PATIENT
  Age: 76 Year
  Sex: Female
  Weight: 67.586 kg

DRUGS (9)
  1. LIPITOR [Suspect]
     Indication: BLOOD CHOLESTEROL INCREASED
     Dosage: 20 MG (20 MG, 1 IN 1 D), ORAL
     Route: 048
     Dates: start: 19960101
  2. CELEBREX [Suspect]
     Indication: HIP SURGERY
     Dosage: (200 MG), ORAL
     Route: 048
  3. METOPROLOL SUCCINATE [Concomitant]
  4. VITAMIN B (VITAMIN B) [Concomitant]
  5. FISH OIL (FISH OIL) [Concomitant]
  6. CALCIUM CARBONATE (CALCIUM CARBONATE) [Concomitant]
  7. ALL OTHER THERAPEUTIC PRODUCTS (ALL OTHER THERAPEUTIC PRODUCTS) [Concomitant]
  8. VITAMIN B-COMPLEX (VITAMIN B-COMPLEX) [Concomitant]
  9. ALENDRONATE SODIUM [Concomitant]

REACTIONS (1)
  - HIP ARTHROPLASTY [None]
